FAERS Safety Report 5477595-2 (Version None)
Quarter: 2007Q4

REPORT INFORMATION
  Report Type: 
  Country: None (occurrence: None)
  Receive Date: 20071002
  Receipt Date: 20070927
  Transmission Date: 20080405
  Serious: Yes (Death, Hospitalization)
  Sender: FDA-Public Use
  Company Number: 2007S1000022

PATIENT
  Age: 2 Decade
  Sex: Male
  Weight: 0.85 kg

DRUGS (9)
  1. NITRIC OXIDE (NITRIC OXIDE) PREVENTION [Suspect]
     Indication: LUNG DISORDER
     Dosage: 5 PPM;CONT; INH
     Route: 055
     Dates: start: 20070102, end: 20070109
  2. AMPICILLIN [Concomitant]
  3. TOBRAMYCIN [Concomitant]
  4. INSULIN [Concomitant]
  5. PLASMA [Concomitant]
  6. BLOOD CELLS, PACKED HUMAN [Concomitant]
  7. VITAMIN K [Concomitant]
  8. FUROSEMIDE [Concomitant]
  9. FUROSEMIDE [Concomitant]

REACTIONS (4)
  - COAGULOPATHY [None]
  - DECREASED ACTIVITY [None]
  - INTRAVENTRICULAR HAEMORRHAGE [None]
  - PATENT DUCTUS ARTERIOSUS [None]
